FAERS Safety Report 12707045 (Version 1)
Quarter: 2016Q3

REPORT INFORMATION
  Report Type: Report from Study
  Country: EC (occurrence: EC)
  Receive Date: 20160901
  Receipt Date: 20160901
  Transmission Date: 20161109
  Serious: Yes (Other)
  Sender: FDA-Public Use
  Company Number: PHHY2016EC119367

PATIENT
  Sex: Male

DRUGS (5)
  1. TASIGNA [Suspect]
     Active Substance: NILOTINIB
     Dosage: 200 MG, QD (ONCE A DAY)
     Route: 048
     Dates: start: 20150728, end: 20160411
  2. TASIGNA [Suspect]
     Active Substance: NILOTINIB
     Dosage: 200 MG, BID (TWICE A DAY)
     Route: 048
     Dates: start: 20160606, end: 20160714
  3. TASIGNA [Suspect]
     Active Substance: NILOTINIB
     Dosage: 200 MG, Q48H (EVERY 48 HOURS)
     Route: 048
     Dates: start: 20150626, end: 20150727
  4. TASIGNA [Suspect]
     Active Substance: NILOTINIB
     Indication: CHRONIC MYELOID LEUKAEMIA
     Dosage: 200 MG, QD (ONCE A DAY)
     Route: 048
     Dates: start: 20150415, end: 20150625
  5. TASIGNA [Suspect]
     Active Substance: NILOTINIB
     Dosage: 200 MG, QD (ONCE A DAY)
     Route: 048
     Dates: start: 20160715

REACTIONS (2)
  - Platelet count decreased [Unknown]
  - Inappropriate schedule of drug administration [Unknown]
